FAERS Safety Report 5946554-5 (Version None)
Quarter: 2008Q4

REPORT INFORMATION
  Report Type: 
  Country: None (occurrence: None)
  Receive Date: 20081110
  Receipt Date: 20081031
  Transmission Date: 20090506
  Serious: Yes (Other)
  Sender: FDA-Public Use
  Company Number: B0545537A

PATIENT
  Sex: Female

DRUGS (5)
  1. TRIZIVIR [Suspect]
     Indication: HIV INFECTION
     Dates: start: 20040115, end: 20050415
  2. CRIXIVAN [Suspect]
     Indication: HIV INFECTION
     Dates: start: 20040115, end: 20041217
  3. NORVIR [Suspect]
     Indication: HIV INFECTION
     Dates: start: 20040115, end: 20041217
  4. VIREAD [Concomitant]
  5. REYATAZ [Concomitant]

REACTIONS (1)
  - HAEMATOTOXICITY [None]
